FAERS Safety Report 7686134-7 (Version None)
Quarter: 2011Q3

REPORT INFORMATION
  Report Type: 
  Country: None (occurrence: None)
  Receive Date: 20110816
  Receipt Date: 20110805
  Transmission Date: 20111222
  Serious: Yes (Disabling, Other)
  Sender: FDA-Public Use
  Company Number: PHFR2011GB01508

PATIENT
  Sex: Female
  Weight: 67 kg

DRUGS (11)
  1. CLOZAPINE [Suspect]
     Dosage: 100 MG MANE, 225MG NOCTE
     Route: 048
     Dates: start: 20101125
  2. LANSOPRAZOLE [Concomitant]
     Dosage: 30 MG, DAILY
  3. SIMAVASTATIN [Concomitant]
     Indication: BLOOD CHOLESTEROL INCREASED
     Dosage: 20 MG, QD
     Route: 048
  4. METFORMIN HCL [Concomitant]
     Dosage: 500 MG, BID
     Route: 048
  5. ALENDRONIC ACID [Concomitant]
     Dosage: 70 UG, QW
     Route: 048
     Dates: start: 20110218
  6. ADCAL [Concomitant]
     Dosage: 1 TABLET BID
  7. NAPROXEN [Concomitant]
     Indication: OSTEOARTHRITIS
     Dosage: 500 MG, DAILY
  8. CLOZAPINE [Suspect]
     Indication: SCHIZOPHRENIA
     Route: 048
     Dates: start: 20101027
  9. ASCORBIC ACID [Concomitant]
     Dosage: 500 MG, DAILY
  10. PAROXETINE HCL [Concomitant]
     Indication: SCHIZOPHRENIA
     Dosage: 20 MG, DAILY
     Route: 048
  11. GLUCOPHAGE [Concomitant]
     Indication: DIABETES MELLITUS
     Dosage: 1 G, BID

REACTIONS (6)
  - MULTIPLE FRACTURES [None]
  - ANAEMIA [None]
  - HAEMOGLOBIN DECREASED [None]
  - ANTIPSYCHOTIC DRUG LEVEL BELOW THERAPEUTIC [None]
  - OSTEOPOROSIS [None]
  - SPINAL FRACTURE [None]
